FAERS Safety Report 4585659-0 (Version None)
Quarter: 2005Q1

REPORT INFORMATION
  Report Type: 
  Country: None (occurrence: None)
  Receive Date: 20050217
  Receipt Date: 20050214
  Transmission Date: 20050727
  Serious: Yes (Hospitalization, Disabling)
  Sender: FDA-Public Use
  Company Number: GB-MERCK-0502GBR00142

PATIENT
  Sex: Female
  Weight: 65 kg

DRUGS (6)
  1. VIOXX [Suspect]
     Route: 048
     Dates: start: 20010614, end: 20030113
  2. OXYTETRACYCLINE [Concomitant]
     Indication: MALABSORPTION
     Route: 065
     Dates: start: 19960101
  3. PROPRANOLOL HYDROCHLORIDE [Concomitant]
     Indication: PANIC ATTACK
     Route: 048
     Dates: start: 19960101
  4. PROCHLORPERAZINE [Concomitant]
     Route: 048
     Dates: start: 19960101
  5. FOLIC ACID [Concomitant]
     Route: 048
     Dates: start: 19960101
  6. CYANOCOBALAMIN [Concomitant]
     Route: 030
     Dates: start: 19960101

REACTIONS (3)
  - BEHCET'S SYNDROME [None]
  - EYELID PTOSIS [None]
  - HEMIPARESIS [None]
